FAERS Safety Report 5911869-3 (Version None)
Quarter: 2008Q4

REPORT INFORMATION
  Report Type: 
  Country: None (occurrence: None)
  Receive Date: 20081008
  Receipt Date: 20080923
  Transmission Date: 20090506
  Serious: Yes (Other)
  Sender: FDA-Public Use
  Company Number: ES-TYCO HEALTHCARE/MALLINCKRODT-T200801609

PATIENT

DRUGS (1)
  1. HEXABRIX [Suspect]
     Indication: CATHETERISATION CARDIAC
     Dosage: 1500 ML, UNK

REACTIONS (5)
  - CEREBRAL DISORDER [None]
  - CONVULSION [None]
  - INTENTIONAL DRUG MISUSE [None]
  - MYOCLONUS [None]
  - SUBARACHNOID HAEMORRHAGE [None]
